FAERS Safety Report 9779655 (Version 1)
Quarter: 2013Q4

REPORT INFORMATION
  Report Type: Spontaneous
  Country: US (occurrence: US)
  Receive Date: 20131223
  Receipt Date: 20131223
  Transmission Date: 20140711
  Serious: No
  Sender: FDA-Public Use
  Company Number: US-PFIZER INC-2013362112

PATIENT
  Age: 77 Year
  Sex: Female

DRUGS (1)
  1. DETROL LA [Suspect]
     Dosage: 2 MG, UNK

REACTIONS (2)
  - Drug hypersensitivity [Unknown]
  - Dysphagia [Unknown]
